FAERS Safety Report 11802286 (Version 1)
Quarter: 2015Q4

REPORT INFORMATION
  Report Type: Spontaneous
  Country: US (occurrence: None)
  Receive Date: 20151203
  Receipt Date: 20151203
  Transmission Date: 20160305
  Serious: No
  Sender: FDA-Public Use
  Company Number: None

PATIENT
  Age: 74 Year
  Sex: Female
  Weight: 60.9 kg

DRUGS (14)
  1. OMEPRAZOLE  (PRILOSEC) [Concomitant]
  2. POTASSIUM CHLORIDE (KLOR-CON M20) [Concomitant]
  3. DRONABINOL (MARINOL) [Concomitant]
  4. ST. JOHN^S WORT [Concomitant]
     Active Substance: ST. JOHN^S WORT
  5. LISINOPRIL. [Concomitant]
     Active Substance: LISINOPRIL
  6. LIPITOR [Concomitant]
     Active Substance: ATORVASTATIN CALCIUM
  7. FOSAMAX [Concomitant]
     Active Substance: ALENDRONATE SODIUM
  8. AMPYRA [Suspect]
     Active Substance: DALFAMPRIDINE
     Indication: MULTIPLE SCLEROSIS
     Route: 048
     Dates: start: 201006
  9. TEGRETOL [Concomitant]
     Active Substance: CARBAMAZEPINE
  10. FERROUS SULFATE [Concomitant]
     Active Substance: FERROUS SULFATE\FERROUS SULFATE, DRIED
  11. LASIX [Concomitant]
     Active Substance: FUROSEMIDE
  12. NORVASC [Concomitant]
     Active Substance: AMLODIPINE BESYLATE
  13. ASPIRIN. [Concomitant]
     Active Substance: ASPIRIN
  14. MODAFINIL (PROVIGIL) [Concomitant]

REACTIONS (2)
  - Insomnia [None]
  - Dizziness [None]

NARRATIVE: CASE EVENT DATE: 20150825
